FAERS Safety Report 23670037 (Version 1)
Quarter: 2024Q1

REPORT INFORMATION
  Report Type: Spontaneous
  Country: US (occurrence: US)
  Receive Date: 20240325
  Receipt Date: 20240325
  Transmission Date: 20240409
  Serious: No
  Sender: FDA-Public Use
  Company Number: US-TPU-TPU-2024-00108

PATIENT
  Sex: Female
  Weight: 51.71 kg

DRUGS (13)
  1. LIDOCAINE [Suspect]
     Active Substance: LIDOCAINE
     Indication: Back pain
  2. LIDOCAINE [Suspect]
     Active Substance: LIDOCAINE
     Indication: Rotator cuff syndrome
  3. LIDOCAINE [Suspect]
     Active Substance: LIDOCAINE
     Indication: Sciatica
  4. LIDOCAINE [Suspect]
     Active Substance: LIDOCAINE
     Indication: Arthralgia
  5. LIDODERM [Concomitant]
     Active Substance: LIDOCAINE
     Indication: Back pain
  6. LIDODERM [Concomitant]
     Active Substance: LIDOCAINE
     Indication: Rotator cuff syndrome
  7. LIDODERM [Concomitant]
     Active Substance: LIDOCAINE
     Indication: Sciatica
  8. LIDODERM [Concomitant]
     Active Substance: LIDOCAINE
     Indication: Arthralgia
  9. PEPCID [Concomitant]
     Active Substance: FAMOTIDINE
  10. Children^s pain and flu chewables [Concomitant]
  11. VITAMIN E [Concomitant]
     Active Substance: .ALPHA.-TOCOPHEROL
  12. VITAMIN D [Concomitant]
     Active Substance: VITAMIN D NOS
  13. XANAX [Concomitant]
     Active Substance: ALPRAZOLAM

REACTIONS (1)
  - Drug ineffective for unapproved indication [Unknown]
